FAERS Safety Report 4638961-8 (Version None)
Quarter: 2005Q2

REPORT INFORMATION
  Report Type: 
  Country: None (occurrence: None)
  Receive Date: 20050419
  Receipt Date: 20050411
  Transmission Date: 20051028
  Serious: Yes (Death, Life-Threatening)
  Sender: FDA-Public Use
  Company Number: HCM-0057

PATIENT
  Age: 80 Year
  Sex: Male

DRUGS (5)
  1. HYCAMTIN [Suspect]
     Indication: SMALL CELL LUNG CANCER STAGE UNSPECIFIED
     Dosage: 1.5MG PER DAY
     Route: 042
     Dates: start: 20021123, end: 20021127
  2. MEXILETINE HYDROCHLORIDE [Concomitant]
     Dosage: 150MG PER DAY
     Route: 048
     Dates: end: 20021226
  3. HYDROCORTISONE SODIUM SUCCINATE [Concomitant]
     Dosage: 500MG PER DAY
     Route: 042
     Dates: start: 20021208, end: 20021213
  4. BROMHEXINE HYDROCHLORIDE [Concomitant]
     Dosage: 8MG PER DAY
     Route: 042
     Dates: start: 20021208, end: 20021230
  5. GRANISETRON  HCL [Concomitant]
     Dosage: 3MG PER DAY
     Route: 042
     Dates: start: 20021223, end: 20021227

REACTIONS (18)
  - ANAEMIA [None]
  - BACK PAIN [None]
  - BLOOD CHLORIDE DECREASED [None]
  - BLOOD LACTATE DEHYDROGENASE INCREASED [None]
  - BLOOD POTASSIUM DECREASED [None]
  - BLOOD SODIUM DECREASED [None]
  - C-REACTIVE PROTEIN INCREASED [None]
  - CHEST PAIN [None]
  - DYSPNOEA [None]
  - LEUKOPENIA [None]
  - NEUTROPENIA [None]
  - NEUTROPHIL COUNT ABNORMAL [None]
  - PLATELET COUNT DECREASED [None]
  - PROTEIN TOTAL DECREASED [None]
  - RED BLOOD CELL COUNT DECREASED [None]
  - SMALL CELL LUNG CANCER STAGE UNSPECIFIED [None]
  - THROMBOCYTOPENIA [None]
  - WHITE BLOOD CELL COUNT DECREASED [None]
